FAERS Safety Report 13999406 (Version 1)
Quarter: 2017Q3

REPORT INFORMATION
  Report Type: Spontaneous
  Country: US (occurrence: US)
  Receive Date: 20170922
  Receipt Date: 20170922
  Transmission Date: 20171128
  Serious: Yes (Other)
  Sender: FDA-Public Use
  Company Number: US-BAYER-2017-180696

PATIENT
  Age: 37 Year
  Sex: Female

DRUGS (1)
  1. MIRENA [Suspect]
     Active Substance: LEVONORGESTREL
     Dosage: 20 MCG/24HR, CONT
     Route: 015
     Dates: start: 20150123, end: 201611

REACTIONS (3)
  - Papilloedema [None]
  - Idiopathic intracranial hypertension [None]
  - Headache [None]

NARRATIVE: CASE EVENT DATE: 20160622
